FAERS Safety Report 15489987 (Version 1)
Quarter: 2018Q4

REPORT INFORMATION
  Report Type: Report from Study
  Country: ES (occurrence: ES)
  Receive Date: 20181011
  Receipt Date: 20181011
  Transmission Date: 20190205
  Serious: Yes (Death, Other)
  Sender: FDA-Public Use
  Company Number: ES-MYLANLABS-2018M1074963

PATIENT
  Age: 88 Year
  Sex: Female

DRUGS (13)
  1. FENTANYL. [Suspect]
     Active Substance: FENTANYL
     Dosage: 75 UG/72 H
     Route: 065
  2. ABSTRAL [Suspect]
     Active Substance: FENTANYL CITRATE
     Indication: BREAKTHROUGH PAIN
     Dosage: 100 UG, UNK
     Route: 060
  3. NALOXEGOL [Suspect]
     Active Substance: NALOXEGOL
     Indication: PRODUCT USED FOR UNKNOWN INDICATION
     Dosage: 25 MG, UNK
     Route: 065
  4. MIDAZOLAM [Concomitant]
     Active Substance: MIDAZOLAM HYDROCHLORIDE
     Indication: PRODUCT USED FOR UNKNOWN INDICATION
     Dosage: UNKNOWN
     Route: 042
  5. DEXAMETHASONE. [Concomitant]
     Active Substance: DEXAMETHASONE
     Indication: PRODUCT USED FOR UNKNOWN INDICATION
     Dosage: UNKNOWN
     Route: 058
  6. MORPHINE [Suspect]
     Active Substance: MORPHINE
     Indication: PRODUCT USED FOR UNKNOWN INDICATION
     Dosage: UNKNOWN
     Route: 042
  7. BUSCAPINA [Concomitant]
     Indication: PRODUCT USED FOR UNKNOWN INDICATION
     Dosage: UNKNOWN
     Route: 042
  8. FENTANYL. [Suspect]
     Active Substance: FENTANYL
     Indication: PRODUCT USED FOR UNKNOWN INDICATION
     Dosage: 25 UG, UNK
     Route: 065
  9. HYALURONIC ACID [Concomitant]
     Active Substance: HYALURONIC ACID
     Indication: PRODUCT USED FOR UNKNOWN INDICATION
     Dosage: UNKNOWN
     Route: 002
  10. PARACETAMOL [Concomitant]
     Active Substance: ACETAMINOPHEN
     Indication: PRODUCT USED FOR UNKNOWN INDICATION
     Dosage: 1 G, Q8H
     Route: 065
  11. DEXAMETHASONE. [Concomitant]
     Active Substance: DEXAMETHASONE
     Indication: PRODUCT USED FOR UNKNOWN INDICATION
     Dosage: 4 MG, IN THE MORNING AND AT NOON
     Route: 048
     Dates: start: 20180319, end: 20180430
  12. BUSCAPINA COMPOSITUM               /00005101/ [Concomitant]
     Indication: PRODUCT USED FOR UNKNOWN INDICATION
     Dosage: 1 AMPOULE, Q12H
     Route: 065
     Dates: start: 20180430
  13. FENTANYL. [Suspect]
     Active Substance: FENTANYL
     Dosage: 50 UG, UNK
     Route: 065
     Dates: start: 20180319, end: 20180430

REACTIONS (12)
  - Tachyarrhythmia [Unknown]
  - Abdominal pain [Unknown]
  - Tachypnoea [Unknown]
  - Discomfort [Unknown]
  - Increased bronchial secretion [Unknown]
  - Anuria [Unknown]
  - Dry mouth [Recovered/Resolved]
  - Somnolence [Unknown]
  - Generalised oedema [Unknown]
  - Insomnia [Recovered/Resolved]
  - Death [Fatal]
  - Asthenia [Unknown]

NARRATIVE: CASE EVENT DATE: 201803
